FAERS Safety Report 8695078 (Version 4)
Quarter: 2013Q1

REPORT INFORMATION
  Report Type: Spontaneous
  Country: US (occurrence: US)
  Receive Date: 20120731
  Receipt Date: 20130116
  Transmission Date: 20140127
  Serious: No
  Sender: FDA-Public Use
  Company Number: US-009507513-2012SP030286

PATIENT
  Sex: Female
  Weight: 43.55 kg

DRUGS (2)
  1. IMPLANON [Suspect]
     Indication: CONTRACEPTION
     Dosage: 1 DF, UNK
     Route: 059
     Dates: start: 20110328
  2. ELAVIL (AMITRIPTYLINE HYDROCHLORIDE) [Concomitant]

REACTIONS (5)
  - Device dislocation [Unknown]
  - Device difficult to use [Unknown]
  - Metrorrhagia [Not Recovered/Not Resolved]
  - Hypoaesthesia [Unknown]
  - Medical device complication [Unknown]
